FAERS Safety Report 10819836 (Version 1)
Quarter: 2015Q1

REPORT INFORMATION
  Report Type: Report from Study
  Country: BR (occurrence: None)
  Receive Date: 20150213
  Receipt Date: 20150213
  Transmission Date: 20150721
  Serious: Yes (Hospitalization)
  Sender: FDA-Public Use
  Company Number: 2015BI013826

PATIENT
  Age: 51 Year
  Sex: Female

DRUGS (6)
  1. LOSARTAN [Concomitant]
     Active Substance: LOSARTAN
  2. AVONEX [Concomitant]
     Active Substance: INTERFERON BETA-1A
  3. AMITRIPTYLINE [Concomitant]
     Active Substance: AMITRIPTYLINE
  4. PRESSAT [Suspect]
     Active Substance: AMLODIPINE BESYLATE
  5. ATENOLOL. [Concomitant]
     Active Substance: ATENOLOL
  6. TYSABRI [Suspect]
     Active Substance: NATALIZUMAB
     Indication: MULTIPLE SCLEROSIS
     Route: 042
     Dates: start: 20141231

REACTIONS (8)
  - Dysstasia [None]
  - Dizziness [None]
  - Mobility decreased [None]
  - Fatigue [None]
  - Dyspnoea [None]
  - Motor dysfunction [None]
  - Pain [None]
  - Memory impairment [None]

NARRATIVE: CASE EVENT DATE: 20141231
